FAERS Safety Report 7767863 (Version 3)
Quarter: 2018Q3

REPORT INFORMATION
  Report Type: Spontaneous
  Country: IN (occurrence: IN)
  Receive Date: 20110120
  Receipt Date: 20180820
  Transmission Date: 20181010
  Serious: Yes (Death, Other)
  Sender: FDA-Public Use
  Company Number: IN-PFIZER INC-2011011343

PATIENT
  Age: 35 Year
  Sex: Female

DRUGS (1)
  1. ATGAM [Suspect]
     Active Substance: EQUINE THYMOCYTE IMMUNE GLOBULIN
     Indication: APLASTIC ANAEMIA
     Dosage: 40 MG/KG, UNK (INFUSION, OVER 6?8 HOURS X 4 DAYS)
     Route: 042

REACTIONS (9)
  - Bronchopulmonary aspergillosis [Not Recovered/Not Resolved]
  - Liver function test abnormal [Unknown]
  - Acute kidney injury [Unknown]
  - Sepsis [Fatal]
  - Febrile neutropenia [Not Recovered/Not Resolved]
  - Hepatomegaly [Unknown]
  - Multiple organ dysfunction syndrome [Fatal]
  - Pyrexia [Unknown]
  - Renal disorder [Unknown]
